FAERS Safety Report 6576421-8 (Version None)
Quarter: 2010Q1

REPORT INFORMATION
  Report Type: 
  Country: None (occurrence: None)
  Receive Date: 20100210
  Receipt Date: 20100201
  Transmission Date: 20100710
  Serious: Yes (Hospitalization)
  Sender: FDA-Public Use
  Company Number: NZ-ASTRAZENECA-2010SE04575

PATIENT
  Age: 9677 Day
  Sex: Female

DRUGS (5)
  1. OMEPRAZOLE [Suspect]
  2. ALLOPURINOL [Suspect]
     Route: 048
     Dates: start: 20050330, end: 20050406
  3. CEFEPIME HYDROCHLORIDE [Suspect]
     Route: 042
     Dates: start: 20050401, end: 20050406
  4. AZITHROMYCIN [Suspect]
     Route: 048
     Dates: start: 20050401, end: 20050401
  5. ACYCLOVIR [Suspect]

REACTIONS (2)
  - RASH [None]
  - VASCULITIS [None]
